FAERS Safety Report 14570062 (Version 2)
Quarter: 2018Q1

REPORT INFORMATION
  Report Type: Spontaneous
  Country: US (occurrence: US)
  Receive Date: 20180225
  Receipt Date: 20180326
  Transmission Date: 20180509
  Serious: No
  Sender: FDA-Public Use
  Company Number: US-GLAXOSMITHKLINE-US2018027612

PATIENT
  Age: 30 Year
  Sex: Female

DRUGS (10)
  1. BENLYSTA [Suspect]
     Active Substance: BELIMUMAB
     Indication: SYSTEMIC LUPUS ERYTHEMATOSUS
     Dosage: UNK UNK, CYC
     Route: 041
     Dates: end: 201707
  2. BUSPAR [Concomitant]
     Active Substance: BUSPIRONE HYDROCHLORIDE
  3. RIZATRIPTAN. [Concomitant]
     Active Substance: RIZATRIPTAN
  4. TOPAMAX [Concomitant]
     Active Substance: TOPIRAMATE
  5. SULFASALAZINE. [Concomitant]
     Active Substance: SULFASALAZINE
  6. OXYCODON [Concomitant]
     Active Substance: OXYCODONE
  7. NORTRIPTYLINE [Concomitant]
     Active Substance: NORTRIPTYLINE
  8. PLAQUENIL [Concomitant]
     Active Substance: HYDROXYCHLOROQUINE SULFATE
  9. BENLYSTA [Suspect]
     Active Substance: BELIMUMAB
     Indication: SYSTEMIC LUPUS ERYTHEMATOSUS
     Dosage: 200 MG, WE
     Route: 042
     Dates: start: 201708
  10. QUINACRINE [Concomitant]
     Active Substance: QUINACRINE

REACTIONS (8)
  - Live birth [Recovered/Resolved]
  - Injection site pain [Recovered/Resolved]
  - Injection site haemorrhage [Unknown]
  - Drug dose omission [Unknown]
  - Exposure during pregnancy [Recovered/Resolved]
  - Wrong technique in device usage process [Unknown]
  - Blood pressure increased [Unknown]
  - Dry skin [Recovering/Resolving]

NARRATIVE: CASE EVENT DATE: 2015
